FAERS Safety Report 25547553 (Version 3)
Quarter: 2025Q3

REPORT INFORMATION
  Report Type: Spontaneous
  Country: EU (occurrence: EU)
  Receive Date: 20250714
  Receipt Date: 20250812
  Transmission Date: 20251020
  Serious: Yes (Life-Threatening, Hospitalization, Other)
  Sender: AUROBINDO
  Company Number: EU-SERVIER-S25007306

PATIENT
  Age: 78 Year
  Sex: Female
  Weight: 66 kg

DRUGS (5)
  1. AZACITIDINE [Suspect]
     Active Substance: AZACITIDINE
     Indication: Acute myeloid leukaemia
     Route: 058
     Dates: start: 20250519, end: 20250523
  2. AZACITIDINE [Suspect]
     Active Substance: AZACITIDINE
     Route: 058
     Dates: start: 20250623
  3. IVOSIDENIB [Suspect]
     Active Substance: IVOSIDENIB
     Indication: Acute myeloid leukaemia
     Route: 048
     Dates: start: 20250519, end: 20250523
  4. IVOSIDENIB [Suspect]
     Active Substance: IVOSIDENIB
     Route: 048
     Dates: start: 20250623, end: 20250630
  5. METOPROLOL [Concomitant]
     Active Substance: METOPROLOL
     Indication: Arrhythmia
     Dosage: 47.5 MILLIGRAM, ONCE A DAY (23.75 MG, BID)
     Route: 048

REACTIONS (8)
  - Leukocytosis [Recovering/Resolving]
  - Differentiation syndrome [Recovered/Resolved]
  - Pneumonia [Recovered/Resolved]
  - Acute kidney injury [Not Recovered/Not Resolved]
  - COVID-19 pneumonia [Recovered/Resolved]
  - Abdominal pain upper [Unknown]
  - Vomiting [Unknown]
  - Diarrhoea [Recovering/Resolving]

NARRATIVE: CASE EVENT DATE: 20250520
